FAERS Safety Report 24051946 (Version 2)
Quarter: 2024Q3

REPORT INFORMATION
  Report Type: Report from Study
  Country: BE (occurrence: BE)
  Receive Date: 20240704
  Receipt Date: 20240805
  Transmission Date: 20241016
  Serious: Yes (Other)
  Sender: CSL BEHRING
  Company Number: BE-BEH-2024174560

PATIENT
  Age: 67 Year
  Sex: Female
  Weight: 85 kg

DRUGS (1)
  1. HIZENTRA [Suspect]
     Active Substance: HUMAN IMMUNOGLOBULIN G
     Indication: Secondary immunodeficiency
     Dosage: 6 G, QW
     Route: 058
     Dates: start: 20240618

REACTIONS (6)
  - Intra-abdominal haematoma [Unknown]
  - Swelling [Unknown]
  - Infusion site pain [Unknown]
  - Erythema [Unknown]
  - Infusion site pruritus [Unknown]
  - Therapy change [Unknown]

NARRATIVE: CASE EVENT DATE: 20240618
